FAERS Safety Report 22636273 (Version 1)
Quarter: 2023Q2

REPORT INFORMATION
  Report Type: Report from Study
  Country: ZA (occurrence: ZA)
  Receive Date: 20230623
  Receipt Date: 20230623
  Transmission Date: 20230721
  Serious: Yes (Hospitalization)
  Sender: FDA-Public Use
  Company Number: ZA-ABBVIE-5301443

PATIENT
  Age: 72 Year
  Sex: Female

DRUGS (1)
  1. BOTOX [Suspect]
     Active Substance: ONABOTULINUMTOXINA
     Indication: Migraine without aura
     Dosage: TIME INTERVAL: AS NECESSARY: 100IU
     Route: 065
     Dates: start: 20210818, end: 20210818

REACTIONS (2)
  - Hospitalisation [Recovered/Resolved]
  - Hospitalisation [Unknown]
